FAERS Safety Report 4617927-8 (Version None)
Quarter: 2005Q1

REPORT INFORMATION
  Report Type: 
  Country: None (occurrence: None)
  Receive Date: 20050324
  Receipt Date: 20050218
  Transmission Date: 20050727
  Serious: Yes (Death, Hospitalization)
  Sender: FDA-Public Use
  Company Number: PHRM2005FR00845

PATIENT
  Age: 61 Year
  Sex: Male
  Weight: 124 kg

DRUGS (10)
  1. HYPERIUM [Suspect]
     Dosage: 1 MG, QD
     Route: 048
     Dates: start: 20041114, end: 20041123
  2. CORDARONE [Suspect]
     Indication: ATRIAL FIBRILLATION
     Dosage: 450 MG PER DAY
     Route: 042
     Dates: start: 20041103, end: 20041105
  3. CORDARONE [Suspect]
     Dosage: 6 DF DAILY
     Route: 048
     Dates: start: 20041106, end: 20041107
  4. CORDARONE [Suspect]
     Dosage: 2 DF DAILY
     Route: 048
     Dates: start: 20041108, end: 20041124
  5. CORDARONE [Suspect]
     Dosage: 1 DF, QD
     Route: 048
     Dates: start: 20041125
  6. SECTRAL [Suspect]
     Dosage: 400 MG PER DAY
     Route: 048
     Dates: start: 20041119, end: 20041125
  7. AMLOR [Suspect]
     Dosage: 10 MG PER DAY
     Route: 048
     Dates: start: 20041114, end: 20041123
  8. STABLON [Concomitant]
     Route: 048
  9. ATARAX [Concomitant]
     Route: 048
  10. TRILEPTAL [Suspect]
     Indication: EPILEPSY
     Dosage: 150 MG PER DAY
     Route: 048
     Dates: start: 20041123, end: 20041125

REACTIONS (18)
  - ABDOMINAL DISTENSION [None]
  - ABDOMINAL PAIN [None]
  - ALANINE AMINOTRANSFERASE INCREASED [None]
  - BILIRUBIN CONJUGATED INCREASED [None]
  - BLOOD ALKALINE PHOSPHATASE INCREASED [None]
  - BLOOD BILIRUBIN INCREASED [None]
  - BLOOD BILIRUBIN UNCONJUGATED INCREASED [None]
  - CHOLELITHIASIS [None]
  - FLATULENCE [None]
  - GAMMA-GLUTAMYLTRANSFERASE INCREASED [None]
  - HEPATITIS CHOLESTATIC [None]
  - ILEUS [None]
  - JAUNDICE [None]
  - NEOPLASM MALIGNANT [None]
  - PYREXIA [None]
  - RENAL NEOPLASM [None]
  - VOMITING [None]
  - WEIGHT DECREASED [None]
